FAERS Safety Report 14876191 (Version 2)
Quarter: 2018Q3

REPORT INFORMATION
  Report Type: Spontaneous
  Country: US (occurrence: US)
  Receive Date: 20180510
  Receipt Date: 20180813
  Transmission Date: 20181010
  Serious: No
  Sender: FDA-Public Use
  Company Number: US-CELLTRION INC.-2018US017860

PATIENT

DRUGS (1)
  1. INFLECTRA [Suspect]
     Active Substance: INFLIXIMAB-DYYB
     Indication: PSORIATIC ARTHROPATHY
     Dosage: 475 MG, CYCLIC [AT 0, 2, 4 AND THEN EVERY 8 WEEKS]
     Route: 065
     Dates: start: 20180420, end: 20180420

REACTIONS (1)
  - Drug prescribing error [Unknown]
